FAERS Safety Report 18646183 (Version 2)
Quarter: 2021Q1

REPORT INFORMATION
  Report Type: Spontaneous
  Country: JP (occurrence: JP)
  Receive Date: 20201221
  Receipt Date: 20210324
  Transmission Date: 20210419
  Serious: Yes (Death, Hospitalization, Other)
  Sender: FDA-Public Use
  Company Number: JP-BRISTOL-MYERS SQUIBB COMPANY-BMS-2020-108532

PATIENT
  Age: 75 Year
  Sex: Male
  Weight: 71.5 kg

DRUGS (1)
  1. OPDIVO [Suspect]
     Active Substance: NIVOLUMAB
     Indication: METASTATIC RENAL CELL CARCINOMA
     Dosage: UNK, Q2W
     Route: 041
     Dates: start: 20180719, end: 20200326

REACTIONS (5)
  - Cholangitis [Fatal]
  - Drug-induced liver injury [Unknown]
  - Bile duct stone [Unknown]
  - Cerebral infarction [Unknown]
  - Blood pressure decreased [Unknown]

NARRATIVE: CASE EVENT DATE: 20200423
